FAERS Safety Report 9254386 (Version 1)
Quarter: 2013Q1

REPORT INFORMATION
  Report Type: Spontaneous
  Country: US (occurrence: None)
  Receive Date: 20121210
  Receipt Date: 20121210
  Transmission Date: 20140127
  Serious: No
  Sender: FDA-Public Use
  Company Number: 1210USA012778

PATIENT
  Age: 75 Year
  Sex: Female
  Weight: 56.7 kg

DRUGS (1)
  1. ZIOPTAN [Suspect]
     Indication: GLAUCOMA
     Dosage: 1 DF, HS, OPHTHALMIC
     Route: 047
     Dates: start: 20121001, end: 20121004

REACTIONS (3)
  - Eye irritation [None]
  - Ocular hyperaemia [None]
  - Abnormal sensation in eye [None]
